FAERS Safety Report 5354678-9 (Version None)
Quarter: 2007Q2

REPORT INFORMATION
  Report Type: 
  Country: None (occurrence: None)
  Receive Date: 20070608
  Receipt Date: 20070523
  Transmission Date: 20071010
  Serious: Yes (Death, Hospitalization)
  Sender: FDA-Public Use
  Company Number: 100#08#2007-01516

PATIENT
  Age: 46 Year
  Sex: Female

DRUGS (2)
  1. DICLOFENAC (DICLOFENAC) (DICLOFENAC) [Suspect]
     Indication: ARTHRITIS
     Dosage: INTRAMUSCULAR TWICE IN 24 HOURS
     Route: 030
  2. KETOROLAC (KETOROLAC) (KETOROLAC) [Suspect]
     Indication: ABDOMINAL PAIN
     Dosage: INTRAMUSCULAR
     Route: 030

REACTIONS (17)
  - ALANINE AMINOTRANSFERASE INCREASED [None]
  - ANURIA [None]
  - ASPARTATE AMINOTRANSFERASE INCREASED [None]
  - BLISTER [None]
  - BLOOD LACTATE DEHYDROGENASE INCREASED [None]
  - BLOOD PRESSURE DECREASED [None]
  - ERYTHEMA [None]
  - ESCHERICHIA INFECTION [None]
  - HEART RATE INCREASED [None]
  - METABOLIC ACIDOSIS [None]
  - MULTI-ORGAN FAILURE [None]
  - NECROTISING FASCIITIS [None]
  - OEDEMA [None]
  - PERIPHERAL COLDNESS [None]
  - PERITONEAL FLUID ANALYSIS ABNORMAL [None]
  - PLATELET COUNT DECREASED [None]
  - WHITE BLOOD CELL COUNT DECREASED [None]
